FAERS Safety Report 7286429-5 (Version None)
Quarter: 2011Q1

REPORT INFORMATION
  Report Type: 
  Country: None (occurrence: None)
  Receive Date: 20110210
  Receipt Date: 20110127
  Transmission Date: 20110831
  Serious: Yes (Death, Other)
  Sender: FDA-Public Use
  Company Number: US-CELGENEUS-163-21880-11012898

PATIENT
  Sex: Male

DRUGS (4)
  1. REVLIMID [Suspect]
     Indication: MULTIPLE MYELOMA
     Route: 048
     Dates: start: 20100723, end: 20110116
  2. ASPIRIN [Concomitant]
     Indication: PROPHYLAXIS
     Route: 065
  3. POTASSIUM CHLORIDE [Concomitant]
     Route: 065
  4. METHYLPREDNISOLONE [Concomitant]
     Route: 048
     Dates: start: 20010724, end: 20110116

REACTIONS (4)
  - DYSARTHRIA [None]
  - MULTIPLE MYELOMA [None]
  - BLOOD POTASSIUM DECREASED [None]
  - VIRAL SINUSITIS [None]
